FAERS Safety Report 20920461 (Version 2)
Quarter: 2022Q2

REPORT INFORMATION
  Report Type: Spontaneous
  Country: US (occurrence: US)
  Receive Date: 20220606
  Receipt Date: 20220621
  Transmission Date: 20220721
  Serious: Yes (Hospitalization, Other)
  Sender: FDA-Public Use
  Company Number: US-BAYER-2022A074876

PATIENT
  Age: 22 Year
  Sex: Male

DRUGS (3)
  1. JIVI [Suspect]
     Active Substance: DAMOCTOCOG ALFA PEGOL
     Dosage: 4083 DF, BIW
  2. JIVI [Suspect]
     Active Substance: DAMOCTOCOG ALFA PEGOL
     Dosage: 4083 DF, PRN
  3. JIVI [Suspect]
     Active Substance: DAMOCTOCOG ALFA PEGOL
     Dosage: 2 DOSES TO TREAT BLEED
     Dates: start: 2022, end: 2022

REACTIONS (2)
  - Diabetes mellitus [None]
  - Haemorrhage [None]

NARRATIVE: CASE EVENT DATE: 20220101
